FAERS Safety Report 16399709 (Version 2)
Quarter: 2019Q2

REPORT INFORMATION
  Report Type: Spontaneous
  Country: US (occurrence: US)
  Receive Date: 20190606
  Receipt Date: 20190624
  Transmission Date: 20190711
  Serious: Yes (Other)
  Sender: FDA-Public Use
  Company Number: US-SA-2019SA150950

PATIENT
  Sex: Female

DRUGS (1)
  1. TOUJEO [Suspect]
     Active Substance: INSULIN GLARGINE
     Route: 065

REACTIONS (5)
  - Blood glucose increased [Unknown]
  - Diabetes mellitus inadequate control [Unknown]
  - Product dose omission [Unknown]
  - Device leakage [Unknown]
  - Drug ineffective [Unknown]
